FAERS Safety Report 5167496-1 (Version None)
Quarter: 2006Q4

REPORT INFORMATION
  Report Type: 
  Country: None (occurrence: None)
  Receive Date: 20061130
  Receipt Date: 20061117
  Transmission Date: 20070319
  Serious: No
  Sender: FDA-Public Use
  Company Number: 200611IM000641

PATIENT
  Age: 2 Year
  Sex: Female

DRUGS (2)
  1. ACTIMMUNE [Suspect]
     Indication: BOVINE TUBERCULOSIS
  2. ANTIMYCOBACTERIAL TREATMENT [Concomitant]

REACTIONS (5)
  - ABSCESS [None]
  - ERYTHEMA [None]
  - INTRASPINAL ABSCESS [None]
  - NO THERAPEUTIC RESPONSE [None]
  - SKIN LESION [None]
